FAERS Safety Report 7432144-4 (Version None)
Quarter: 2011Q2

REPORT INFORMATION
  Report Type: 
  Country: None (occurrence: None)
  Receive Date: 20110422
  Receipt Date: 20110414
  Transmission Date: 20111010
  Serious: Yes (Hospitalization, Other)
  Sender: FDA-Public Use
  Company Number: US-JNJFOC-20110305825

PATIENT
  Sex: Female
  Weight: 52.16 kg

DRUGS (7)
  1. AVONEX [Suspect]
     Indication: MULTIPLE SCLEROSIS
     Route: 030
  2. DURAGESIC-100 [Suspect]
     Indication: BACK PAIN
     Route: 062
  3. BACLOFEN [Concomitant]
     Indication: MUSCLE SPASMS
     Route: 048
  4. BACLOFEN [Concomitant]
     Route: 048
  5. SOMA [Concomitant]
     Indication: MUSCLE SPASMS
     Route: 048
  6. DURAGESIC-100 [Suspect]
     Route: 062
  7. PROVIGIL [Concomitant]
     Indication: FATIGUE
     Route: 048

REACTIONS (11)
  - BACK PAIN [None]
  - NERVE INJURY [None]
  - DEVICE LEAKAGE [None]
  - INTERVERTEBRAL DISC INJURY [None]
  - INTERVERTEBRAL DISC PROTRUSION [None]
  - MUSCLE SPASMS [None]
  - BACK INJURY [None]
  - INFLUENZA LIKE ILLNESS [None]
  - DELIRIUM TREMENS [None]
  - RESTLESSNESS [None]
  - INTERVERTEBRAL DISC DISORDER [None]
